FAERS Safety Report 15203961 (Version 1)
Quarter: 2018Q3

REPORT INFORMATION
  Report Type: Spontaneous
  Country: GB (occurrence: GB)
  Receive Date: 20180726
  Receipt Date: 20180726
  Transmission Date: 20181010
  Serious: Yes (Life-Threatening)
  Sender: FDA-Public Use
  Company Number: GB-TEVA-2018-GB-930944

PATIENT
  Age: 55 Year
  Sex: Male

DRUGS (2)
  1. KENALOG [Suspect]
     Active Substance: TRIAMCINOLONE ACETONIDE
     Indication: PERIARTHRITIS
     Route: 014
     Dates: start: 20180618
  2. LIDOCAINE. [Suspect]
     Active Substance: LIDOCAINE
     Indication: PERIARTHRITIS
     Route: 014
     Dates: start: 20180618

REACTIONS (6)
  - Cold sweat [Unknown]
  - Nausea [Unknown]
  - Oropharyngeal pain [Unknown]
  - Paraesthesia [Unknown]
  - Nasopharyngitis [Unknown]
  - Abdominal pain [Unknown]

NARRATIVE: CASE EVENT DATE: 20180618
